FAERS Safety Report 4867589-X (Version None)
Quarter: 2005Q4

REPORT INFORMATION
  Report Type: 
  Country: None (occurrence: None)
  Receive Date: 20051223
  Receipt Date: 20051223
  Transmission Date: 20060501
  Serious: Yes (Other)
  Sender: FDA-Public Use
  Company Number: None

PATIENT
  Sex: Female
  Weight: 73.9363 kg

DRUGS (11)
  1. LOSARTAN POTASSIUM [Suspect]
     Indication: HYPERTENSION
     Dosage: 50 MG Q DAY PO
     Route: 048
     Dates: start: 20050621, end: 20050706
  2. ASCORBIC ACID [Concomitant]
  3. CA CARBONATE [Concomitant]
  4. EPIPEN [Concomitant]
  5. GABAPENTIN [Concomitant]
  6. HYDRO/APAP [Concomitant]
  7. LORATADINE [Concomitant]
  8. LOVASTATIN [Concomitant]
  9. METRONIDAZOLE [Concomitant]
  10. RANITIDINE [Concomitant]
  11. VITAMIN E [Concomitant]

REACTIONS (2)
  - BACK PAIN [None]
  - MUSCLE SPASMS [None]
